FAERS Safety Report 7783506-7 (Version None)
Quarter: 2011Q3

REPORT INFORMATION
  Report Type: 
  Country: None (occurrence: None)
  Receive Date: 20110928
  Receipt Date: 20110928
  Transmission Date: 20111222
  Serious: Yes (Other)
  Sender: FDA-Public Use
  Company Number: None

PATIENT
  Sex: Male

DRUGS (2)
  1. METFORMIN HCL [Suspect]
     Indication: DIABETES MELLITUS
     Dosage: 500MG
     Route: 048
  2. GLYBURIDE [Concomitant]
     Route: 048

REACTIONS (2)
  - VITAMIN B COMPLEX DEFICIENCY [None]
  - CEREBROVASCULAR ACCIDENT [None]
